FAERS Safety Report 24827628 (Version 1)
Quarter: 2025Q1

REPORT INFORMATION
  Report Type: Spontaneous
  Country: FR (occurrence: FR)
  Receive Date: 20250109
  Receipt Date: 20250109
  Transmission Date: 20250409
  Serious: Yes (Other)
  Sender: MYLAN
  Company Number: None

PATIENT
  Age: 55 Year
  Sex: Female
  Weight: 62 kg

DRUGS (1)
  1. PREDNISONE [Suspect]
     Active Substance: PREDNISONE
     Indication: Pain
     Dosage: 70 MILLIGRAM, QD (70 MG AT HOME WITH RAPID DECREASE OVER 3 WEEKS)
     Route: 048
     Dates: start: 20240921, end: 20240925

REACTIONS (4)
  - Suicidal ideation [Recovered/Resolved]
  - Mania [Recovered/Resolved]
  - Headache [Recovered/Resolved]
  - Malaise [Recovered/Resolved]

NARRATIVE: CASE EVENT DATE: 20240922
